FAERS Safety Report 9393536 (Version 1)
Quarter: 2013Q3

REPORT INFORMATION
  Report Type: Spontaneous
  Country: KR (occurrence: None)
  Receive Date: 20130705
  Receipt Date: 20130705
  Transmission Date: 20140515
  Serious: Yes (Hospitalization)
  Sender: FDA-Public Use
  Company Number: 1778700

PATIENT
  Age: 14 Year
  Sex: Female

DRUGS (1)
  1. VANCOMYCIN HYDROCHLORIDE [Suspect]
     Indication: STAPHYLOCOCCAL INFECTION
     Dosage: (NOT OTHERWISE SPECIFIED)
     Route: 042

REACTIONS (5)
  - Acute hepatic failure [None]
  - Hepatomegaly [None]
  - Hepatic encephalopathy [None]
  - Liver transplant [None]
  - Drug reaction with eosinophilia and systemic symptoms [None]
